FAERS Safety Report 8271183-0 (Version None)
Quarter: 2012Q2

REPORT INFORMATION
  Report Type: 
  Country: None (occurrence: None)
  Receive Date: 20120410
  Receipt Date: 20120327
  Transmission Date: 20120825
  Serious: Yes (Death, Life-Threatening, Hospitalization, Disabling, Other)
  Sender: FDA-Public Use
  Company Number: PH-ROCHE-740082

PATIENT
  Sex: Female
  Weight: 52.5 kg

DRUGS (8)
  1. HERCEPTIN [Suspect]
     Indication: BREAST CANCER
     Dosage: LAST DOSE PRIOR TO SAE : 26 OCT 2010, PERMANENTLY DISCONTINUED ON 16 NOV 2010
     Route: 042
     Dates: start: 20101026, end: 20101116
  2. FLUCONAZOLE [Concomitant]
     Dates: start: 20101103, end: 20101122
  3. TINZAPARIN [Concomitant]
     Dosage: TDD 10000 UNITS
     Dates: start: 20101105, end: 20101106
  4. VITAMIN K TAB [Concomitant]
     Dates: start: 20101107, end: 20101123
  5. CIPROFLOXACIN HYDROCHLORIDE [Concomitant]
     Dates: start: 20101026, end: 20101102
  6. OMEPRAZOLE [Concomitant]
     Dates: start: 20101102, end: 20101105
  7. DOCETAXEL [Suspect]
     Indication: BREAST CANCER
     Dosage: LAST DOSE PRIOR TO SAE 26 OCT 2010, PERMANENTLY DISCONTINUED ON 16 NOV 2010
     Route: 042
     Dates: start: 20101026, end: 20101116
  8. MUCOSTA [Concomitant]
     Dates: start: 20101109, end: 20101111

REACTIONS (7)
  - FEBRILE NEUTROPENIA [None]
  - CARDIO-RESPIRATORY ARREST [None]
  - DUODENAL ULCER [None]
  - HEPATIC FAILURE [None]
  - PNEUMONIA [None]
  - NEUTROPENIA [None]
  - GASTROINTESTINAL ULCER [None]
